FAERS Safety Report 5982856-4 (Version None)
Quarter: 2008Q4

REPORT INFORMATION
  Report Type: 
  Country: None (occurrence: None)
  Receive Date: 20081208
  Receipt Date: 20081106
  Transmission Date: 20090506
  Serious: No
  Sender: FDA-Public Use
  Company Number: US-BAYER-200838810NA

PATIENT
  Age: 23 Year
  Sex: Female

DRUGS (1)
  1. OCELLA TABLETS [Suspect]
     Indication: ORAL CONTRACEPTION
     Route: 048
     Dates: start: 20081019, end: 20081024

REACTIONS (2)
  - ABDOMINAL DISCOMFORT [None]
  - NAUSEA [None]
